FAERS Safety Report 4727283-2 (Version None)
Quarter: 2005Q3

REPORT INFORMATION
  Report Type: 
  Country: None (occurrence: None)
  Receive Date: 20050727
  Receipt Date: 20050727
  Transmission Date: 20060218
  Serious: Yes (Other)
  Sender: FDA-Public Use
  Company Number: None

PATIENT
  Age: 56 Year
  Sex: Male
  Weight: 60.7 kg

DRUGS (10)
  1. OPTIRAY 320 [Suspect]
     Indication: SCAN
     Dosage: INTRAVEN
     Route: 042
  2. VALACYCLOVIR HCL [Concomitant]
  3. HYDROCODNE/ACETAMINOPHEN [Concomitant]
  4. INDOMETHACIN [Concomitant]
  5. DULOXETINE HCL [Concomitant]
  6. OMEPRAZOLE [Concomitant]
  7. SENNOSIDES [Concomitant]
  8. LIDOCAINE [Concomitant]
  9. MISOPROSTOL [Concomitant]
  10. TERBINAFINE HYDROCHLORIDE CREAM 1% [Concomitant]

REACTIONS (1)
  - URTICARIA [None]
